FAERS Safety Report 6970563-0 (Version None)
Quarter: 2010Q3

REPORT INFORMATION
  Report Type: 
  Country: None (occurrence: None)
  Receive Date: 20100908
  Receipt Date: 20100902
  Transmission Date: 20110219
  Serious: Yes (Life-Threatening)
  Sender: FDA-Public Use
  Company Number: TH-GILEAD-2010-0029523

PATIENT
  Sex: Male
  Weight: 67 kg

DRUGS (4)
  1. TRUVADA [Suspect]
     Indication: HIV INFECTION
  2. EFAVIRENZ [Suspect]
     Indication: HIV INFECTION
     Dates: end: 20100430
  3. RALTEGRAVIR [Concomitant]
     Indication: HIV INFECTION
  4. MARAVIROC [Concomitant]
     Indication: HIV INFECTION
     Dates: end: 20100809

REACTIONS (1)
  - GAMMA-GLUTAMYLTRANSFERASE INCREASED [None]
